FAERS Safety Report 18259224 (Version 2)
Quarter: 2020Q3

REPORT INFORMATION
  Report Type: Spontaneous
  Country: JP (occurrence: JP)
  Receive Date: 20200911
  Receipt Date: 20200916
  Transmission Date: 20201103
  Serious: Yes (Hospitalization, Other)
  Sender: FDA-Public Use
  Company Number: JP-PFIZER INC-2020348502

PATIENT
  Sex: Female

DRUGS (2)
  1. SOLANAX [Suspect]
     Active Substance: ALPRAZOLAM
     Dosage: UNK, 1X/DAY
     Route: 048
  2. SOLANAX [Suspect]
     Active Substance: ALPRAZOLAM
     Dosage: 2 DF

REACTIONS (10)
  - Mental impairment [Unknown]
  - Intentional product misuse [Unknown]
  - Emotional distress [Unknown]
  - Speech disorder [Unknown]
  - Pneumonia [Unknown]
  - Insomnia [Unknown]
  - Gait disturbance [Unknown]
  - Headache [Unknown]
  - Poor quality sleep [Unknown]
  - Dizziness [Unknown]
